FAERS Safety Report 19942654 (Version 1)
Quarter: 2021Q4

REPORT INFORMATION
  Report Type: Spontaneous
  Country: DE (occurrence: DE)
  Receive Date: 20211012
  Receipt Date: 20211012
  Transmission Date: 20220303
  Serious: Yes (Hospitalization)
  Sender: FDA-Public Use
  Company Number: DE-NOVARTISPH-NVSC2021DE228469

PATIENT
  Age: 13 Year
  Sex: Female
  Weight: 23.7 kg

DRUGS (2)
  1. METHOTREXATE SODIUM [Suspect]
     Active Substance: METHOTREXATE SODIUM
     Indication: Product used for unknown indication
     Dosage: 10 MG
     Route: 048
     Dates: start: 20171027
  2. ETANERCEPT [Concomitant]
     Active Substance: ETANERCEPT
     Indication: Product used for unknown indication
     Dosage: 25 MG, QW
     Route: 065
     Dates: start: 20190215, end: 20210318

REACTIONS (1)
  - Gastrointestinal inflammation [Unknown]

NARRATIVE: CASE EVENT DATE: 20210301
